FAERS Safety Report 10418956 (Version 1)
Quarter: 2014Q3

REPORT INFORMATION
  Report Type: Spontaneous
  Country: FR (occurrence: None)
  Receive Date: 20140827
  Receipt Date: 20140827
  Transmission Date: 20150326
  Serious: No
  Sender: FDA-Public Use
  Company Number: FR-2014-0817

PATIENT
  Age: 11 Month
  Sex: Female
  Weight: 9.16 kg

DRUGS (2)
  1. PROPANOLOL [Suspect]
     Active Substance: PROPRANOLOL HYDROCHLORIDE
     Indication: EYELID HAEMANGIOMA
     Route: 048
     Dates: start: 20131206
  2. FLUOSTEROL [Concomitant]

REACTIONS (4)
  - Pallor [None]
  - Fall [None]
  - Malaise [None]
  - Peripheral coldness [None]

NARRATIVE: CASE EVENT DATE: 201312
